FAERS Safety Report 9728123 (Version 1)
Quarter: 2013Q4

REPORT INFORMATION
  Report Type: Spontaneous
  Country: US (occurrence: None)
  Receive Date: 20131127
  Receipt Date: 20131127
  Transmission Date: 20140711
  Serious: Yes (Other)
  Sender: FDA-Public Use
  Company Number: 2027076

PATIENT
  Age: 43 Year
  Sex: Female

DRUGS (2)
  1. (BUPIVACAINE HYDROCHLORIDE) [Suspect]
     Indication: SYNOVIAL CYST
     Dosage: UNKNOWN , UNKNOWN, UNKNOWN
  2. (BUPIVACAINE HYDROCHLORIDE) [Suspect]
     Indication: SURGERY
     Dosage: UNKNOWN , UNKNOWN, UNKNOWN

REACTIONS (1)
  - Respiratory depression [None]
